FAERS Safety Report 20406143 (Version 4)
Quarter: 2022Q3

REPORT INFORMATION
  Report Type: Spontaneous
  Country: JP (occurrence: JP)
  Receive Date: 20220131
  Receipt Date: 20220714
  Transmission Date: 20221027
  Serious: No
  Sender: FDA-Public Use
  Company Number: JP-GSKNCCC-Case-01407389_AE-54220

PATIENT

DRUGS (12)
  1. ANORO ELLIPTA [Suspect]
     Active Substance: UMECLIDINIUM BROMIDE\VILANTEROL TRIFENATATE
     Dosage: 2 DF
     Route: 055
  2. BENIDIPINE HYDROCHLORIDE [Concomitant]
     Active Substance: BENIDIPINE HYDROCHLORIDE
     Dosage: 4 MG, QD, AFTER BREAKFAST
  3. VALSARTAN [Concomitant]
     Active Substance: VALSARTAN
     Dosage: 80 MG, QD, AFTER BREAKFAST
  4. SITAGLIPTIN [Concomitant]
     Active Substance: SITAGLIPTIN
     Dosage: 50 MG, QD, AFTER BREAKFAST
  5. EPLERENONE [Concomitant]
     Active Substance: EPLERENONE
     Dosage: 50 MG, QD, AFTER BREAKFAST
  6. DIMETHICONE [Concomitant]
     Active Substance: DIMETHICONE
     Dosage: 40 MG, TID, AFTER EACH MEAL
  7. HERBALS [Concomitant]
     Active Substance: HERBALS
     Dosage: UNK, TID, AFTER EACH MEAL
  8. MOSAPRIDE CITRATE [Concomitant]
     Active Substance: MOSAPRIDE CITRATE
     Dosage: 5 MG, TID, AFTER EACH MEAL
  9. UNSPECIFIED INGREDIENT [Concomitant]
     Active Substance: UNSPECIFIED INGREDIENT
     Dosage: UNK, TID, AFTER EACH MEAL
  10. GLICLAZIDE [Concomitant]
     Active Substance: GLICLAZIDE
     Dosage: 20 MG, QD, AFTER BREAKFAST
  11. PREGABALIN [Concomitant]
     Active Substance: PREGABALIN
     Dosage: 150 MG, BID, AFTER BREAKFAST AND AFTER DINNER
  12. VONOPRAZAN FUMARATE [Concomitant]
     Active Substance: VONOPRAZAN FUMARATE
     Dosage: 20 MG, QD, BEFORE BEDTIME

REACTIONS (1)
  - Prescribed overdose [Unknown]
